FAERS Safety Report 20355237 (Version 1)
Quarter: 2022Q1

REPORT INFORMATION
  Report Type: Spontaneous
  Country: US (occurrence: None)
  Receive Date: 20220120
  Receipt Date: 20220120
  Transmission Date: 20220423
  Serious: Yes (Hospitalization)
  Sender: FDA-Public Use
  Company Number: None

PATIENT
  Age: 16 Year
  Sex: Female
  Weight: 52.2 kg

DRUGS (6)
  1. PREDNISONE [Suspect]
     Active Substance: PREDNISONE
     Dates: end: 20220111
  2. ONCASPAR [Suspect]
     Active Substance: PEGASPARGASE
     Dates: end: 20211220
  3. DAUNORUBICIN [Suspect]
     Active Substance: DAUNORUBICIN
     Dates: end: 20220106
  4. METHOTREXATE [Suspect]
     Active Substance: METHOTREXATE
     Dates: end: 20211223
  5. VINCRISTINE SULFATE [Suspect]
     Active Substance: VINCRISTINE SULFATE
     Dates: end: 20220106
  6. CYTARABINE [Suspect]
     Active Substance: CYTARABINE
     Dates: end: 20211217

REACTIONS (8)
  - Pain in extremity [None]
  - Myalgia [None]
  - Pain in extremity [None]
  - Hypoaesthesia [None]
  - Paraesthesia [None]
  - Pain [None]
  - Haemoglobin decreased [None]
  - Osteonecrosis [None]

NARRATIVE: CASE EVENT DATE: 20220112
